FAERS Safety Report 8043529-X (Version None)
Quarter: 2012Q1

REPORT INFORMATION
  Report Type: 
  Country: None (occurrence: None)
  Receive Date: 20120112
  Receipt Date: 20120104
  Transmission Date: 20120608
  Serious: Yes (Hospitalization, Other)
  Sender: FDA-Public Use
  Company Number: US-PFIZER INC-2012002914

PATIENT
  Sex: Female
  Weight: 52.608 kg

DRUGS (6)
  1. TRAMADOL [Concomitant]
     Dosage: UNK, 1X/DAY
  2. TAMOXIFEN [Concomitant]
     Indication: BREAST CANCER
     Dosage: UNK
  3. IBUPROFEN (ADVIL) [Concomitant]
     Dosage: UNK
  4. LISINOPRIL [Concomitant]
     Dosage: UNK
  5. XALATAN [Suspect]
     Indication: GLAUCOMA
     Dosage: 1 DROP IN EACH EYE ONCE DAILY
     Route: 047
     Dates: start: 20100701
  6. VYTORIN [Concomitant]
     Indication: BLOOD CHOLESTEROL INCREASED
     Dosage: UNK

REACTIONS (6)
  - WEIGHT DECREASED [None]
  - FEMUR FRACTURE [None]
  - PAIN IN EXTREMITY [None]
  - BACK PAIN [None]
  - CHRONIC OBSTRUCTIVE PULMONARY DISEASE [None]
  - GAIT DISTURBANCE [None]
